FAERS Safety Report 21137213 (Version 1)
Quarter: 2022Q3

REPORT INFORMATION
  Report Type: Other
  Country: ZW (occurrence: ZW)
  Receive Date: 20220727
  Receipt Date: 20220727
  Transmission Date: 20221027
  Serious: Yes (Other)
  Sender: FDA-Public Use
  Company Number: ZW-MACLEODS PHARMACEUTICALS US LTD-MAC2022036502

PATIENT

DRUGS (5)
  1. LAMIVUDINE\ZIDOVUDINE [Suspect]
     Active Substance: LAMIVUDINE\ZIDOVUDINE
     Indication: HIV infection
     Dosage: 2 DOSAGE FORM, QD ( 2 TAB/CAPS, 1 COURSE, EXPOSURE DURING FIRST TRIMESTER)
     Route: 048
     Dates: start: 20210616
  2. LAMIVUDINE\TENOFOVIR [Suspect]
     Active Substance: LAMIVUDINE\TENOFOVIR
     Indication: HIV infection
     Dosage: 1 DOSAGE FORM, QD (1 TAB/CAPS, 1 COURSE, EXPOSURE DURINGFIRST TRIMESTER, PRIOR TO CONCEPTION)
     Route: 048
     Dates: start: 20210519, end: 20210615
  3. PREZISTA [Suspect]
     Active Substance: DARUNAVIR ETHANOLATE
     Indication: HIV infection
     Dosage: 800 MILLIGRAM, QD  (1 COURSE, EXPOSURE DURING FIRST TRIMESTER, ONGOING AT DELIVERY)
     Route: 048
     Dates: start: 20210616
  4. TIVICAY [Suspect]
     Active Substance: DOLUTEGRAVIR SODIUM
     Indication: HIV infection
     Dosage: 50 MILLIGRAM, QD (1 COURSE, PRIOR TO CONCEPTION, EXPOSURE DURING FIRST TRIMESTER))
     Route: 048
     Dates: start: 20210519, end: 20210615
  5. NORVIR [Suspect]
     Active Substance: RITONAVIR
     Indication: HIV infection
     Dosage: 100 MILLIGRAM, QD (1 COURSE, EXPOSURE DURING FIRST TRIMESTER, ONGOING AT DELIVERY)
     Route: 048
     Dates: start: 20210616

REACTIONS (2)
  - Abortion spontaneous [Unknown]
  - Maternal exposure during pregnancy [Unknown]

NARRATIVE: CASE EVENT DATE: 20210915
